FAERS Safety Report 5477276-5 (Version None)
Quarter: 2007Q4

REPORT INFORMATION
  Report Type: 
  Country: None (occurrence: None)
  Receive Date: 20071004
  Receipt Date: 20070927
  Transmission Date: 20080405
  Serious: Yes (Life-Threatening)
  Sender: FDA-Public Use
  Company Number: US-PURDUE-USA_2007_0029412

PATIENT
  Age: 18 Month
  Sex: Male

DRUGS (1)
  1. OXYCONTIN [Suspect]
     Indication: DRUG ABUSER
     Dosage: UNK, UNK
     Route: 048

REACTIONS (1)
  - LOSS OF CONSCIOUSNESS [None]
